FAERS Safety Report 8572504-1 (Version None)
Quarter: 2012Q3

REPORT INFORMATION
  Report Type: 
  Country: None (occurrence: None)
  Receive Date: 20120806
  Receipt Date: 20120726
  Transmission Date: 20120928
  Serious: Yes (Hospitalization, Other)
  Sender: FDA-Public Use
  Company Number: JP-ASTRAZENECA-2012SE31702

PATIENT
  Age: 64 Year
  Sex: Male

DRUGS (1)
  1. OMEPRAZOLE [Suspect]
     Indication: HAEMATEMESIS
     Route: 048
     Dates: start: 20101001, end: 20101001

REACTIONS (1)
  - INTERSTITIAL LUNG DISEASE [None]
